FAERS Safety Report 5143668-7 (Version None)
Quarter: 2006Q4

REPORT INFORMATION
  Report Type: 
  Country: None (occurrence: None)
  Receive Date: 20061103
  Receipt Date: 20061027
  Transmission Date: 20070319
  Serious: Yes (Other)
  Sender: FDA-Public Use
  Company Number: IT-ROXANE LABORATORIES, INC-2006-DE-05709GD

PATIENT
  Sex: Male
  Weight: 3 kg

DRUGS (5)
  1. MORPHINE [Suspect]
     Indication: PROCEDURAL PAIN
     Dosage: PEAK 30 MCG/KG/H; MEDIAN 18 MCG/KG/MIN WAS ADMINISTERED FOR 5 DAYS, LATER INCREASED TO A PEAK OF 60
  2. FENTANYL CITRATE [Suspect]
     Indication: PROCEDURAL PAIN
     Dosage: 0.7 MCG/KG/H
  3. PHENOBARBITAL TAB [Concomitant]
     Indication: CONVULSION
     Dosage: 20 MG/KG/DAY LOADING DOSE AND 5 MG/KG/DAY MAINTENANCE DOSE
  4. PHENOBARBITAL TAB [Concomitant]
     Indication: NYSTAGMUS
  5. PHENOBARBITAL TAB [Concomitant]
     Indication: OCULOGYRATION

REACTIONS (8)
  - AGITATION [None]
  - BODY TEMPERATURE INCREASED [None]
  - CRYING [None]
  - DRUG WITHDRAWAL SYNDROME [None]
  - HYPERHIDROSIS [None]
  - MYOCLONUS [None]
  - REGURGITATION OF FOOD [None]
  - TACHYCARDIA [None]
